FAERS Safety Report 9970666 (Version 1)
Quarter: 2014Q1

REPORT INFORMATION
  Report Type: Spontaneous
  Country: US (occurrence: None)
  Receive Date: 20140304
  Receipt Date: 20140304
  Transmission Date: 20141002
  Serious: Yes (Death, Other)
  Sender: FDA-Public Use
  Company Number: VAL_03010_2014

PATIENT
  Age: 47 Year
  Sex: Female

DRUGS (2)
  1. CALCITRIOL [Suspect]
     Indication: HYPOPARATHYROIDISM
  2. WARFARIN [Concomitant]

REACTIONS (3)
  - Sepsis [None]
  - Calciphylaxis [None]
  - Bacteraemia [None]
